FAERS Safety Report 6025196-X (Version None)
Quarter: 2008Q4

REPORT INFORMATION
  Report Type: 
  Country: None (occurrence: None)
  Receive Date: 20081229
  Receipt Date: 20081229
  Transmission Date: 20090506
  Serious: Yes (Other)
  Sender: FDA-Public Use
  Company Number: None

PATIENT
  Age: 42 Year
  Sex: Male
  Weight: 108.8633 kg

DRUGS (2)
  1. LIPITOR [Suspect]
     Dosage: 40MG
     Dates: start: 20000101, end: 20070901
  2. LIPITOR [Suspect]
     Dosage: 10MG
     Dates: start: 20070901, end: 20081228

REACTIONS (4)
  - AMNESIA [None]
  - ARTHRALGIA [None]
  - COGNITIVE DISORDER [None]
  - MYALGIA [None]
